FAERS Safety Report 4327534-2 (Version None)
Quarter: 2004Q1

REPORT INFORMATION
  Report Type: 
  Country: None (occurrence: None)
  Receive Date: 20040325
  Receipt Date: 20040318
  Transmission Date: 20041129
  Serious: Yes (Hospitalization, Other)
  Sender: FDA-Public Use
  Company Number: FRWYE658523MAR04

PATIENT
  Age: 79 Year
  Sex: Female

DRUGS (1)
  1. EFFEXOR [Suspect]
     Indication: BIPOLAR I DISORDER
     Dosage: BETWEN 150 AND 200 MG DAILY, ORAL
     Route: 048
     Dates: start: 20020101

REACTIONS (4)
  - BUNDLE BRANCH BLOCK LEFT [None]
  - BUNDLE BRANCH BLOCK RIGHT [None]
  - FALL [None]
  - SYNCOPE [None]
